FAERS Safety Report 13653293 (Version 1)
Quarter: 2017Q2

REPORT INFORMATION
  Report Type: Spontaneous
  Country: US (occurrence: US)
  Receive Date: 20170614
  Receipt Date: 20170614
  Transmission Date: 20170830
  Serious: No
  Sender: FDA-Public Use
  Company Number: US-ROCHE-1442742

PATIENT
  Age: 72 Year
  Sex: Male

DRUGS (2)
  1. XELODA [Suspect]
     Active Substance: CAPECITABINE
     Indication: COLORECTAL CANCER METASTATIC
     Route: 048
     Dates: start: 20140718
  2. XELODA [Suspect]
     Active Substance: CAPECITABINE
     Dosage: 2 WEEKS ON 1 WEEK OFF
     Route: 048
     Dates: start: 201402

REACTIONS (5)
  - Gait disturbance [Unknown]
  - Skin exfoliation [Unknown]
  - Lip pain [Unknown]
  - Peripheral swelling [Unknown]
  - Oral pain [Unknown]

NARRATIVE: CASE EVENT DATE: 201405
